FAERS Safety Report 9479435 (Version 1)
Quarter: 2013Q3

REPORT INFORMATION
  Report Type: Spontaneous
  Country: US (occurrence: US)
  Receive Date: 20130827
  Receipt Date: 20130827
  Transmission Date: 20140515
  Serious: No
  Sender: FDA-Public Use
  Company Number: US-PFIZER INC-2013245763

PATIENT
  Age: 74 Year
  Sex: Female
  Weight: 63.49 kg

DRUGS (7)
  1. LIPITOR [Suspect]
     Dosage: UNK
  2. GABAPENTIN [Suspect]
     Dosage: UNK
  3. LYRICA [Suspect]
     Indication: DIABETIC NEUROPATHY
     Dosage: 75 MG, 2X/DAY
     Route: 048
     Dates: start: 20130708
  4. CRESTOR [Suspect]
     Dosage: UNK
  5. SPIRONOLACTONE [Concomitant]
     Indication: HYPERTENSION
     Dosage: 25 MG, DAILY
  6. LOSARTAN [Concomitant]
     Indication: HYPERTENSION
     Dosage: 100 MG, 2X/DAY
  7. NIFEDIPINE [Concomitant]
     Indication: HYPERTENSION
     Dosage: 50 MG, DAILY

REACTIONS (3)
  - Pain in extremity [Unknown]
  - Myalgia [Unknown]
  - Muscle spasms [Unknown]
